FAERS Safety Report 18194799 (Version 1)
Quarter: 2020Q3

REPORT INFORMATION
  Report Type: Report from Study
  Country: US (occurrence: US)
  Receive Date: 20200825
  Receipt Date: 20200825
  Transmission Date: 20201103
  Serious: Yes (Other)
  Sender: FDA-Public Use
  Company Number: US-SHIRE-US202027160

PATIENT
  Sex: Female

DRUGS (4)
  1. HUMAN IMMUNOGLOBULIN; HYALURONIDASE [Suspect]
     Active Substance: HUMAN IMMUNOGLOBULIN G\HYALURONIDASE RECOMBINANT HUMAN
     Indication: IMMUNODEFICIENCY COMMON VARIABLE
     Dosage: 30 GRAM, EVERY 4 WK
     Route: 065
  2. HUMAN IMMUNOGLOBULIN; HYALURONIDASE [Suspect]
     Active Substance: HUMAN IMMUNOGLOBULIN G\HYALURONIDASE RECOMBINANT HUMAN
     Dosage: 20 GRAM, EVERY 4 WK
     Route: 065
  3. ASPIRIN (E.C.) [Concomitant]
     Active Substance: ASPIRIN
     Indication: BLOOD DISORDER
  4. CELEBREX [Concomitant]
     Active Substance: CELECOXIB
     Indication: BLOOD DISORDER

REACTIONS (11)
  - Body temperature increased [Unknown]
  - Muscular weakness [Unknown]
  - Limb discomfort [Unknown]
  - Infusion site erythema [Unknown]
  - Spinal osteoarthritis [Unknown]
  - Asthenia [Unknown]
  - Musculoskeletal discomfort [Unknown]
  - Contusion [Unknown]
  - Hepatic enzyme increased [Unknown]
  - Thrombosis [Unknown]
  - Fall [Unknown]
